FAERS Safety Report 5732311-1 (Version None)
Quarter: 2008Q2

REPORT INFORMATION
  Report Type: 
  Country: None (occurrence: None)
  Receive Date: 20080508
  Receipt Date: 20080414
  Transmission Date: 20081010
  Serious: No
  Sender: FDA-Public Use
  Company Number: US-BOEHRINGER INGELHEIM GMBH, GERMANY-2008-BP-05814BP

PATIENT
  Sex: Male

DRUGS (7)
  1. FLOMAX [Suspect]
     Indication: BENIGN PROSTATIC HYPERPLASIA
     Dates: start: 20080201, end: 20080301
  2. CELEBREX [Concomitant]
     Indication: PAIN IN EXTREMITY
     Route: 048
     Dates: start: 20071201
  3. AVODART [Concomitant]
     Indication: PROSTATIC DISORDER
     Dates: start: 20080221, end: 20080227
  4. GABOPENTIN [Concomitant]
  5. DARVACET [Concomitant]
     Indication: SCIATICA
  6. DICALT PLUS [Concomitant]
  7. SAW PALMETTO [Concomitant]

REACTIONS (2)
  - HOT FLUSH [None]
  - LIP SWELLING [None]
